FAERS Safety Report 9885738 (Version 1)
Quarter: 2014Q1

REPORT INFORMATION
  Report Type: Spontaneous
  Country: GB (occurrence: GB)
  Receive Date: 20140210
  Receipt Date: 20140210
  Transmission Date: 20141002
  Serious: Yes (Other)
  Sender: FDA-Public Use
  Company Number: GB-GLAXOSMITHKLINE-B0966108A

PATIENT
  Age: 61 Year
  Sex: Female
  Weight: 97.5 kg

DRUGS (1)
  1. ORLISTAT [Suspect]
     Dates: start: 20131108

REACTIONS (1)
  - Rash [Not Recovered/Not Resolved]
